FAERS Safety Report 19877532 (Version 1)
Quarter: 2021Q3

REPORT INFORMATION
  Report Type: Spontaneous
  Country: FR (occurrence: FR)
  Receive Date: 20210923
  Receipt Date: 20210923
  Transmission Date: 20211014
  Serious: Yes (Other)
  Sender: FDA-Public Use
  Company Number: FR-ABBVIE-21K-056-4089269-00

PATIENT
  Age: 63 Year
  Sex: Female

DRUGS (5)
  1. DEPAKOTE [Suspect]
     Active Substance: DIVALPROEX SODIUM
     Indication: BIPOLAR DISORDER
     Dosage: ONE TABLET IN MORNING AND ONE IN EVENING.
     Route: 065
     Dates: start: 2006
  2. GINKGO EXTRACT\HEPTAMINOL\TROXERUTIN [Concomitant]
     Active Substance: GINKGO\HEPTAMINOL\TROXERUTIN
     Indication: PRODUCT USED FOR UNKNOWN INDICATION
  3. SEEBRI BREEZHALER [Concomitant]
     Active Substance: GLYCOPYRROLATE
     Indication: PRODUCT USED FOR UNKNOWN INDICATION
  4. AIROMIR [Concomitant]
     Active Substance: ALBUTEROL SULFATE
     Indication: PRODUCT USED FOR UNKNOWN INDICATION
  5. VENTOLINE [Concomitant]
     Active Substance: ALBUTEROL
     Indication: PRODUCT USED FOR UNKNOWN INDICATION

REACTIONS (17)
  - Visual impairment [Unknown]
  - Hypertension [Unknown]
  - Coma [Unknown]
  - Nausea [Unknown]
  - Skin disorder [Unknown]
  - Weight increased [Unknown]
  - Oral herpes [Unknown]
  - Suicide attempt [Unknown]
  - Product availability issue [Unknown]
  - Peripheral swelling [Unknown]
  - Urinary incontinence [Unknown]
  - Somnolence [Unknown]
  - Oedema peripheral [Unknown]
  - Lung disorder [Unknown]
  - Hypoaesthesia [Unknown]
  - Suicidal ideation [Unknown]
  - Enuresis [Unknown]

NARRATIVE: CASE EVENT DATE: 2016
